FAERS Safety Report 9538288 (Version 5)
Quarter: 2014Q2

REPORT INFORMATION
  Report Type: Report from Study
  Country: ES (occurrence: ES)
  Receive Date: 20130920
  Receipt Date: 20140416
  Transmission Date: 20141212
  Serious: Yes (Hospitalization)
  Sender: FDA-Public Use
  Company Number: ES-BRISTOL-MYERS SQUIBB COMPANY-19373943

PATIENT
  Age: 63 Year
  Sex: Female

DRUGS (11)
  1. PACLITAXEL [Suspect]
     Indication: BREAST CANCER
     Dosage: LAST DOSE:20AUG2013?INTER:28AUG2013
     Route: 042
     Dates: start: 20130806
  2. PERTUZUMAB [Suspect]
     Indication: BREAST CANCER
     Dosage: LAST DOSE:06AUG2013?INTER:28AUG2013
     Route: 042
     Dates: start: 20130806
  3. EUTIROX [Concomitant]
     Dates: start: 2001
  4. SIMVASTATIN [Concomitant]
     Dates: start: 1993
  5. ZOPICLONE [Concomitant]
     Dates: start: 1995
  6. OMEPRAZOLE [Concomitant]
  7. PANTOPRAZOLE [Concomitant]
     Dosage: 28AUG13-05SE13?12SE13-12SE13
     Dates: start: 20130828, end: 20130912
  8. PARACETAMOL [Concomitant]
     Dates: start: 20130917
  9. CEFAZOLIN [Concomitant]
     Dates: start: 20130808, end: 20130808
  10. BETAMETHASONE [Concomitant]
     Dates: start: 20130826, end: 20130906
  11. ATORVASTATIN [Concomitant]
     Dates: start: 20130828, end: 20130919

REACTIONS (5)
  - Renal failure acute [Unknown]
  - Diarrhoea [Not Recovered/Not Resolved]
  - Hyponatraemia [Unknown]
  - Hypokalaemia [Unknown]
  - Hypomagnesaemia [Recovered/Resolved]
